FAERS Safety Report 6461294-4 (Version None)
Quarter: 2009Q4

REPORT INFORMATION
  Report Type: 
  Country: None (occurrence: None)
  Receive Date: 20091130
  Receipt Date: 20091120
  Transmission Date: 20100525
  Serious: Yes (Hospitalization)
  Sender: FDA-Public Use
  Company Number: US-ABBOTT-09P-163-0609875-00

PATIENT
  Sex: Female
  Weight: 58.112 kg

DRUGS (1)
  1. SYNTHROID [Suspect]
     Indication: THYROIDECTOMY
     Route: 048
     Dates: start: 19830101

REACTIONS (6)
  - ABDOMINAL DISCOMFORT [None]
  - BLOOD THYROID STIMULATING HORMONE INCREASED [None]
  - COLECTOMY [None]
  - EROSIVE OESOPHAGITIS [None]
  - SNEEZING [None]
  - VOMITING [None]
